FAERS Safety Report 10921167 (Version 2)
Quarter: 2015Q1

REPORT INFORMATION
  Report Type: Spontaneous
  Country: US (occurrence: US)
  Receive Date: 20150317
  Receipt Date: 20150327
  Transmission Date: 20150721
  Serious: Yes (Death, Hospitalization)
  Sender: FDA-Public Use
  Company Number: US-ASTRAZENECA-2015SE13563

PATIENT
  Age: 500 Day
  Sex: Female

DRUGS (25)
  1. OCULAR LUBRICANT [Concomitant]
     Dosage: 1 APPLICATION EVERY 2 HOURS BOTH EYES
  2. DEXTROSE. [Concomitant]
     Active Substance: DEXTROSE
     Dosage: 5 % CUSTOM ADDITIVIES
     Dates: end: 20150224
  3. FUROSEMIDE. [Concomitant]
     Active Substance: FUROSEMIDE
     Dosage: 0.301 MCG/KG/HR
     Dates: start: 20150227
  4. SYNAGIS [Suspect]
     Active Substance: PALIVIZUMAB
     Indication: HYPOXIA
     Route: 030
  5. SODIUM CHLORIDE. [Concomitant]
     Active Substance: SODIUM CHLORIDE
     Dosage: 0.9 % 2 ML/HR
     Route: 055
     Dates: start: 20150227
  6. DOPAMINE [Concomitant]
     Active Substance: DOPAMINE\DOPAMINE HYDROCHLORIDE
     Dosage: 9.992 MCG/KG/HR
     Route: 042
     Dates: start: 20150227
  7. EPINEPHRINE. [Concomitant]
     Active Substance: EPINEPHRINE
     Dosage: 0 MCG/KG/HR
     Route: 042
     Dates: start: 20150224
  8. SYNAGIS [Suspect]
     Active Substance: PALIVIZUMAB
     Indication: RESPIRATORY SYNCYTIAL VIRUS INFECTION
     Route: 030
     Dates: start: 20141103
  9. ALBUTEROL. [Concomitant]
     Active Substance: ALBUTEROL
     Route: 055
  10. SYNAGIS [Suspect]
     Active Substance: PALIVIZUMAB
     Indication: RESPIRATORY SYNCYTIAL VIRUS INFECTION
     Route: 030
  11. MORPHINE [Concomitant]
     Active Substance: MORPHINE
     Dosage: 0.07 MCG/KG/HR
     Dates: start: 20150227
  12. PHENYLEPHRINE [Concomitant]
     Active Substance: PHENYLEPHRINE\PHENYLEPHRINE HYDROCHLORIDE
     Dosage: 0.14 MCG/KG/MIN
     Dates: start: 20150227
  13. SYNAGIS [Suspect]
     Active Substance: PALIVIZUMAB
     Indication: HYPOXIA
     Route: 030
     Dates: start: 20141103
  14. ANTIBIOTICS [Concomitant]
     Active Substance: UNSPECIFIED INGREDIENT
  15. DEXAMEDETOMIDINE [Concomitant]
     Dosage: 0.248 MCG/KG/HR
     Route: 042
     Dates: start: 20150227
  16. TPN [Concomitant]
     Active Substance: AMINO ACIDS\DEXTROSE\ELECTROLYTES NOS\SOYBEAN OIL
     Dosage: RATE ORDER 25.6 ML/HR
     Dates: start: 20150227
  17. SYNAGIS [Suspect]
     Active Substance: PALIVIZUMAB
     Indication: HYPOXIA
     Route: 030
     Dates: start: 20141107, end: 20150203
  18. CHLOROTHIAZIDE. [Concomitant]
     Active Substance: CHLOROTHIAZIDE
     Route: 042
  19. FLUCONAZOLE. [Concomitant]
     Active Substance: FLUCONAZOLE
     Route: 042
  20. MEROPENEM. [Concomitant]
     Active Substance: MEROPENEM
     Route: 042
  21. SODIUM CHLORIDE HEPARIN [Concomitant]
     Dosage: SODIUM CHLORIDE 0.9 %+ HEPARIN 1 UNIT/ML 1 ML/HR
     Dates: start: 20150227
  22. SYNAGIS [Suspect]
     Active Substance: PALIVIZUMAB
     Indication: RESPIRATORY SYNCYTIAL VIRUS INFECTION
     Route: 030
     Dates: start: 20141107, end: 20150203
  23. ASPIRIN. [Concomitant]
     Active Substance: ASPIRIN
  24. MULTIPLE PRESSORS [Concomitant]
  25. SODIUM CHLORIDE. [Concomitant]
     Active Substance: SODIUM CHLORIDE
     Route: 055

REACTIONS (1)
  - Acute respiratory failure [Fatal]

NARRATIVE: CASE EVENT DATE: 20150220
